FAERS Safety Report 6460753-8 (Version None)
Quarter: 2009Q4

REPORT INFORMATION
  Report Type: 
  Country: None (occurrence: None)
  Receive Date: 20091130
  Receipt Date: 20091126
  Transmission Date: 20100525
  Serious: Yes (Life-Threatening)
  Sender: FDA-Public Use
  Company Number: JP-SANOFI-AVENTIS-F01200801835

PATIENT
  Age: 63 Year
  Sex: Male
  Weight: 71 kg

DRUGS (12)
  1. CLOPIDOGREL BISULFATE [Suspect]
     Dosage: DOSE TEXT: STARTING DOSE
     Route: 048
     Dates: start: 20081008, end: 20081008
  2. CLOPIDOGREL BISULFATE [Suspect]
     Indication: ACUTE CORONARY SYNDROME
     Dosage: DOSE TEXT: STARTING DOSE
     Route: 048
     Dates: start: 20081008, end: 20081008
  3. CLOPIDOGREL BISULFATE [Suspect]
     Dosage: DOSE TEXT: MAINTENANCE DOSE
     Route: 048
     Dates: start: 20081009
  4. CLOPIDOGREL BISULFATE [Suspect]
     Dosage: DOSE TEXT: MAINTENANCE DOSE
     Route: 048
     Dates: start: 20081009
  5. ASPIRIN [Concomitant]
     Route: 048
     Dates: start: 20041001, end: 20081008
  6. ASPIRIN [Concomitant]
     Route: 048
     Dates: start: 20081009
  7. HEPARIN [Concomitant]
     Route: 042
     Dates: start: 20041008, end: 20081012
  8. ISOSORBIDE DINITRATE [Concomitant]
     Route: 042
     Dates: start: 20081008, end: 20081008
  9. LASIX [Concomitant]
     Route: 042
     Dates: start: 20041008, end: 20081016
  10. HANP [Concomitant]
     Route: 042
     Dates: start: 20041009, end: 20081014
  11. DOBUTREX [Concomitant]
     Route: 042
     Dates: start: 20041008, end: 20081014
  12. LIPITOR [Concomitant]
     Route: 048
     Dates: start: 20080418

REACTIONS (1)
  - VENTRICULAR TACHYCARDIA [None]
